FAERS Safety Report 5895298-7 (Version None)
Quarter: 2008Q3

REPORT INFORMATION
  Report Type: 
  Country: None (occurrence: None)
  Receive Date: 20080924
  Receipt Date: 20080918
  Transmission Date: 20090109
  Serious: Yes (Other)
  Sender: FDA-Public Use
  Company Number: CA-ASTRAZENECA-2008UW18723

PATIENT
  Age: 21600 Day
  Sex: Male
  Weight: 96.2 kg

DRUGS (4)
  1. CRESTOR [Suspect]
     Indication: HYPERCHOLESTEROLAEMIA
     Route: 048
     Dates: start: 20080827, end: 20080916
  2. CRESTOR [Suspect]
     Route: 048
     Dates: start: 20080401
  3. ASPIRIN [Concomitant]
     Indication: ANTICOAGULANT THERAPY
     Route: 048
     Dates: start: 20050101
  4. ADVANTAGE CENTRUM [Concomitant]
     Dosage: 3 TABS DAILY
     Route: 048
     Dates: start: 20080601

REACTIONS (6)
  - DYSPNOEA [None]
  - DYSURIA [None]
  - LIBIDO DECREASED [None]
  - LOSS OF CONTROL OF LEGS [None]
  - PARAESTHESIA [None]
  - RASH [None]
